FAERS Safety Report 15689689 (Version 1)
Quarter: 2018Q4

REPORT INFORMATION
  Report Type: Spontaneous
  Country: US (occurrence: US)
  Receive Date: 20181205
  Receipt Date: 20181205
  Transmission Date: 20190205
  Serious: No
  Sender: FDA-Public Use
  Company Number: US-NOVOPROD-621410

PATIENT
  Sex: Female

DRUGS (1)
  1. NOVOLIN R [Suspect]
     Active Substance: INSULIN HUMAN
     Indication: PRODUCT USED FOR UNKNOWN INDICATION
     Dosage: 10 U, UNK
     Route: 058

REACTIONS (4)
  - Intentional product misuse [Unknown]
  - Feeling abnormal [Unknown]
  - Tremor [Unknown]
  - Hypoglycaemia [Unknown]
